FAERS Safety Report 9423006 (Version 8)
Quarter: 2014Q2

REPORT INFORMATION
  Report Type: Spontaneous
  Country: US (occurrence: US)
  Receive Date: 20130726
  Receipt Date: 20140508
  Transmission Date: 20141212
  Serious: Yes (Hospitalization, Disabling, Other)
  Sender: FDA-Public Use
  Company Number: US-009507513-1307USA014153

PATIENT
  Sex: Female
  Weight: 57.5 kg

DRUGS (7)
  1. FOSAMAX [Suspect]
     Indication: OSTEOPOROSIS
     Dosage: 10 MG, UNK
     Route: 048
     Dates: start: 1999, end: 201006
  2. FOSAMAX [Suspect]
     Indication: OSTEOPENIA
     Dosage: 70 MG, UNK
     Route: 048
     Dates: end: 201006
  3. ACTONEL [Suspect]
     Indication: OSTEOPOROSIS
     Dosage: 150 MG, UNK
     Dates: start: 201006, end: 201207
  4. ACTONEL [Suspect]
     Indication: OSTEOPENIA
  5. ACTIVELLA [Concomitant]
     Indication: MENOPAUSE
  6. CALCIUM (UNSPECIFIED) (+) VITAMIN D (UNSPECIFIED) [Concomitant]
     Indication: OSTEOPOROSIS
  7. CALCIUM (UNSPECIFIED) (+) VITAMIN D (UNSPECIFIED) [Concomitant]
     Indication: POSTMENOPAUSE

REACTIONS (20)
  - Intramedullary rod insertion [Unknown]
  - Femur fracture [Recovering/Resolving]
  - Intramedullary rod insertion [Unknown]
  - Breast cancer [Unknown]
  - Cholecystectomy [Unknown]
  - Low turnover osteopathy [Not Recovered/Not Resolved]
  - Femur fracture [Unknown]
  - Femur fracture [Recovered/Resolved]
  - Tooth impacted [Unknown]
  - Wisdom teeth removal [Unknown]
  - Vitamin D deficiency [Not Recovered/Not Resolved]
  - Radiotherapy [Unknown]
  - Adverse event [Unknown]
  - Breast lump removal [Unknown]
  - Thyroid disorder [Unknown]
  - Limb operation [Unknown]
  - Pathological fracture [Unknown]
  - Osteoarthritis [Not Recovered/Not Resolved]
  - Arthralgia [Unknown]
  - Musculoskeletal discomfort [Unknown]
